FAERS Safety Report 5316019-2 (Version None)
Quarter: 2007Q2

REPORT INFORMATION
  Report Type: 
  Country: None (occurrence: None)
  Receive Date: 20070503
  Receipt Date: 20070424
  Transmission Date: 20071010
  Serious: Yes (Disabling)
  Sender: FDA-Public Use
  Company Number: IN-SANOFI-SYNTHELABO-A01200704292

PATIENT
  Age: 760 Month
  Sex: Female
  Weight: 50 kg

DRUGS (1)
  1. ZOLPIDEM TARTRATE [Suspect]
     Indication: INSOMNIA
     Dosage: 12.5 MG
     Route: 048
     Dates: start: 20070317

REACTIONS (4)
  - CONVULSION [None]
  - COORDINATION ABNORMAL [None]
  - DYSKINESIA [None]
  - IRRITABILITY [None]
